FAERS Safety Report 16599944 (Version 2)
Quarter: 2019Q3

REPORT INFORMATION
  Report Type: Spontaneous
  Country: RU (occurrence: RU)
  Receive Date: 20190720
  Receipt Date: 20190727
  Transmission Date: 20191004
  Serious: Yes (Life-Threatening, Other)
  Sender: FDA-Public Use
  Company Number: RU-ACCORD-139038

PATIENT
  Age: 15 Year
  Sex: Female
  Weight: 34.5 kg

DRUGS (4)
  1. METHOTREXATE. [Suspect]
     Active Substance: METHOTREXATE
     Indication: OSTEOSARCOMA
     Dosage: 12 G/M2,ALTERNATING BLOCKS: HIGHDOSE MTX, 12 G/M2 OVER 4H, LYOPHILISATE FOR SOLUTION FOR INJECTION
     Route: 042
     Dates: start: 20180220, end: 2018
  2. CISPLATIN. [Concomitant]
     Active Substance: CISPLATIN
     Indication: OSTEOSARCOMA
     Dosage: ALTERNATING CHEMOTHERAPY BLOCKS CISPLATIN, 120 MG/M2
  3. FOLINIC ACID [Concomitant]
     Active Substance: LEUCOVORIN
  4. DOXORUBICIN [Concomitant]
     Active Substance: DOXORUBICIN
     Indication: OSTEOSARCOMA
     Dosage: ALTERNATING CHEMOTHERAPY BLOCKS: DOXORUBICIN, 75 MG/M2

REACTIONS (11)
  - Mucosal inflammation [Recovered/Resolved]
  - Pain [Recovering/Resolving]
  - Neutropenia [Recovered/Resolved]
  - Toxic encephalopathy [Recovered/Resolved]
  - Acute kidney injury [Unknown]
  - Drug-induced liver injury [Unknown]
  - Anaemia [Recovered/Resolved]
  - Febrile neutropenia [Unknown]
  - Neurotoxicity [Recovered/Resolved]
  - Thrombocytopenia [Recovered/Resolved]
  - Stomatitis [Unknown]

NARRATIVE: CASE EVENT DATE: 2018
